FAERS Safety Report 8415089-2 (Version None)
Quarter: 2012Q2

REPORT INFORMATION
  Report Type: 
  Country: None (occurrence: None)
  Receive Date: 20120530
  Receipt Date: 20120523
  Transmission Date: 20120825
  Serious: Yes (Death, Life-Threatening, Disabling, Other)
  Sender: FDA-Public Use
  Company Number: DSA_55815_2012

PATIENT
  Sex: Male

DRUGS (6)
  1. LITHIUM [Concomitant]
  2. XENAZINE [Suspect]
     Indication: HUNTINGTON'S DISEASE
     Dosage: (12.5 MG BID ORAL)
     Route: 048
     Dates: start: 20090115
  3. POZAC [Concomitant]
  4. ZYPREXA [Concomitant]
  5. TRAZODONE HCL [Concomitant]
  6. KLONOPIN [Concomitant]

REACTIONS (1)
  - CACHEXIA [None]
